FAERS Safety Report 7867776-2 (Version None)
Quarter: 2011Q4

REPORT INFORMATION
  Report Type: 
  Country: None (occurrence: None)
  Receive Date: 20111028
  Receipt Date: 20111019
  Transmission Date: 20120403
  Serious: Yes (Hospitalization)
  Sender: FDA-Public Use
  Company Number: IT-EISAI INC-E3810-04987-SPO-IT

PATIENT
  Sex: Female

DRUGS (6)
  1. ATORVASTATIN CALCIUM [Suspect]
     Indication: HYPERCHOLESTEROLAEMIA
     Route: 048
     Dates: start: 20110610
  2. RAMIPRIL [Suspect]
     Indication: ESSENTIAL HYPERTENSION
     Route: 048
     Dates: start: 20110610
  3. ATORVASTATIN CALCIUM [Suspect]
     Indication: ESSENTIAL HYPERTENSION
  4. RABEPRAZOLE SODIUM [Suspect]
     Route: 048
     Dates: start: 20110610
  5. ASPIRIN [Suspect]
     Indication: ISCHAEMIC HEART DISEASE PROPHYLAXIS
     Route: 048
     Dates: start: 20110610
  6. NORVASC [Suspect]
     Indication: ESSENTIAL HYPERTENSION
     Route: 048
     Dates: start: 20110610

REACTIONS (2)
  - ERYTHEMA [None]
  - PRURITUS [None]
